FAERS Safety Report 10191265 (Version 1)
Quarter: 2014Q2

REPORT INFORMATION
  Report Type: Spontaneous
  Country: GB (occurrence: GB)
  Receive Date: 20140523
  Receipt Date: 20140523
  Transmission Date: 20141212
  Serious: Yes (Disabling, Other)
  Sender: FDA-Public Use
  Company Number: CHNY2014GB001152

PATIENT
  Age: 99 Year
  Sex: Female

DRUGS (9)
  1. SCOPALAMINIE HYDROBROMIDE [Suspect]
     Dosage: 400 UG, UNK
     Route: 058
     Dates: start: 20140429, end: 20140429
  2. ADCAL-D3 [Concomitant]
     Dosage: UNK
  3. ASPIRIN [Concomitant]
     Dosage: UNK
  4. LANSOPRAZOLE [Concomitant]
     Dosage: UNK
  5. LATANOPROST [Concomitant]
     Dosage: UNK
  6. PERINDOPRIL ERBUMINE [Concomitant]
     Dosage: UNK
  7. PROCHLORPERAZINE MALEATE [Concomitant]
     Dosage: UNK
  8. SENNA [Concomitant]
     Dosage: UNK
  9. SIMVASTATIN [Concomitant]
     Dosage: UNK

REACTIONS (2)
  - Aphasia [Recovered/Resolved]
  - Unresponsive to stimuli [Recovered/Resolved]
